APPROVED DRUG PRODUCT: SELFEMRA
Active Ingredient: FLUOXETINE HYDROCHLORIDE
Strength: EQ 20MG BASE
Dosage Form/Route: TABLET;ORAL
Application: A200151 | Product #003
Applicant: TEVA PHARMACEUTICALS USA INC
Approved: Feb 3, 2014 | RLD: No | RS: No | Type: DISCN